FAERS Safety Report 7021684-8 (Version None)
Quarter: 2010Q3

REPORT INFORMATION
  Report Type: 
  Country: None (occurrence: None)
  Receive Date: 20100928
  Receipt Date: 20100915
  Transmission Date: 20110219
  Serious: Yes (Other)
  Sender: FDA-Public Use
  Company Number: JP-SOLVAY-00310005687

PATIENT
  Age: 40 Year
  Sex: Male

DRUGS (2)
  1. LUVOX [Suspect]
     Indication: DEPRESSION
     Dosage: 75 MILLIGRAM(S); ORAL
     Route: 048
  2. ALPRAZOLAM [Concomitant]

REACTIONS (1)
  - INTENTIONAL OVERDOSE [None]
